FAERS Safety Report 6492357-5 (Version None)
Quarter: 2009Q4

REPORT INFORMATION
  Report Type: 
  Country: None (occurrence: None)
  Receive Date: 20091214
  Receipt Date: 20091203
  Transmission Date: 20100525
  Serious: Yes (Hospitalization)
  Sender: FDA-Public Use
  Company Number: GR-ELI_LILLY_AND_COMPANY-GR200912001121

PATIENT
  Sex: Female
  Weight: 73 kg

DRUGS (9)
  1. PEMETREXED [Suspect]
     Indication: NON-SMALL CELL LUNG CANCER
     Dosage: 500 MG/M2, ON D1 EVERY 21 DAYS
     Route: 042
     Dates: start: 20090601, end: 20090803
  2. PEMETREXED [Suspect]
     Dosage: UNK, ON D1 EVERY 21 DAYS
     Route: 042
     Dates: start: 20090824
  3. CISPLATIN [Suspect]
     Indication: NON-SMALL CELL LUNG CANCER
     Dosage: 75 MG/M2, ON D1 EVERY 21 DAYS
     Route: 042
     Dates: start: 20090601, end: 20090803
  4. FOLIC ACID [Concomitant]
     Indication: PROPHYLAXIS
     Dates: start: 20090522
  5. VIT B12 [Concomitant]
     Indication: PROPHYLAXIS
     Dates: start: 20090522
  6. DEXAMETHASONE TAB [Concomitant]
     Indication: PROPHYLAXIS
     Dates: start: 20090531
  7. SALOSPIR                           /00002701/ [Concomitant]
     Indication: HYPERTENSION
     Dates: start: 19900101
  8. TENORETIC 100 [Concomitant]
     Indication: HYPERTENSION
     Dates: start: 19900101
  9. OLMESARTAN MEDOXOMIL [Concomitant]
     Indication: HYPERTENSION
     Dates: start: 19900101

REACTIONS (1)
  - DIZZINESS [None]
